FAERS Safety Report 6016829-2 (Version None)
Quarter: 2008Q4

REPORT INFORMATION
  Report Type: 
  Country: None (occurrence: None)
  Receive Date: 20081219
  Receipt Date: 20081217
  Transmission Date: 20090506
  Serious: Yes (Life-Threatening, Other)
  Sender: FDA-Public Use
  Company Number: 2007SP007297

PATIENT
  Age: 55 Year
  Sex: Male
  Weight: 65 kg

DRUGS (4)
  1. TEMODAL [Suspect]
     Indication: GLIOBLASTOMA MULTIFORME
     Dosage: 75 MG/M2;QD/PO : 100 MG/M2;QD;PO
     Route: 048
     Dates: start: 20070124, end: 20070307
  2. TEMODAL [Suspect]
     Indication: GLIOBLASTOMA MULTIFORME
     Dosage: 75 MG/M2;QD/PO : 100 MG/M2;QD;PO
     Route: 048
     Dates: start: 20070717, end: 20070721
  3. COTRIM [Concomitant]
  4. ALEVIATIN [Concomitant]

REACTIONS (17)
  - ACUTE RESPIRATORY DISTRESS SYNDROME [None]
  - BASOPHIL COUNT INCREASED [None]
  - CATHETER SITE INFECTION [None]
  - DISSEMINATED INTRAVASCULAR COAGULATION [None]
  - HEPATIC FUNCTION ABNORMAL [None]
  - HERPES VIRUS INFECTION [None]
  - HERPES ZOSTER DISSEMINATED [None]
  - HYPERGLYCAEMIA [None]
  - HYPERNATRAEMIA [None]
  - IMPETIGO [None]
  - LYMPHOPENIA [None]
  - MULTI-ORGAN FAILURE [None]
  - OSTEOMYELITIS [None]
  - PLATELET COUNT DECREASED [None]
  - SHOCK [None]
  - STAPHYLOCOCCAL SEPSIS [None]
  - SUBCUTANEOUS ABSCESS [None]
